FAERS Safety Report 8013301-5 (Version None)
Quarter: 2011Q4

REPORT INFORMATION
  Report Type: 
  Country: None (occurrence: None)
  Receive Date: 20111229
  Receipt Date: 20111221
  Transmission Date: 20120403
  Serious: Yes (Hospitalization)
  Sender: FDA-Public Use
  Company Number: PHHO2011US021474

PATIENT
  Age: 61 Year
  Sex: Female
  Weight: 79.7 kg

DRUGS (4)
  1. VICODIN [Concomitant]
  2. AFINITOR [Suspect]
     Indication: THYROID CANCER
     Dosage: 10 MG, QD
     Route: 048
     Dates: start: 20111203, end: 20111220
  3. LORAZEPAM [Concomitant]
     Dosage: UNK
  4. SIMVASTATIN [Concomitant]

REACTIONS (2)
  - PYREXIA [None]
  - WHEEZING [None]
